FAERS Safety Report 6074596-0 (Version None)
Quarter: 2009Q1

REPORT INFORMATION
  Report Type: 
  Country: None (occurrence: None)
  Receive Date: 20090209
  Receipt Date: 20090125
  Transmission Date: 20090719
  Serious: Yes (Other)
  Sender: FDA-Public Use
  Company Number: CHPA2009US01636

PATIENT
  Age: 3 Year
  Sex: Female

DRUGS (1)
  1. TRIAMINIC-D MULTISYMPTOM COLD (NCH) (CHLORPHENIRAMINE MALEATE, DEXTROM [Suspect]
     Dosage: ORAL
     Route: 048
     Dates: start: 20090125, end: 20090125

REACTIONS (4)
  - ACCIDENTAL DRUG INTAKE BY CHILD [None]
  - DYSARTHRIA [None]
  - FATIGUE [None]
  - SOMNOLENCE [None]
